FAERS Safety Report 16539687 (Version 4)
Quarter: 2019Q3

REPORT INFORMATION
  Report Type: Spontaneous
  Country: US (occurrence: US)
  Receive Date: 20190708
  Receipt Date: 20190926
  Transmission Date: 20191004
  Serious: Yes (Other)
  Sender: FDA-Public Use
  Company Number: US-PFIZER INC-2019286348

PATIENT
  Age: 35 Year
  Sex: Female
  Weight: 61 kg

DRUGS (1)
  1. DEPO-PROVERA [Suspect]
     Active Substance: MEDROXYPROGESTERONE ACETATE
     Indication: CONTRACEPTION
     Dosage: 104 MG, EVERY 3 MONTHS (104MG SUBCUTANEOUS TO LEFT THIGH EVERY 3 MONTHS)
     Route: 058
     Dates: start: 20190219

REACTIONS (1)
  - Injection site indentation [Recovered/Resolved with Sequelae]

NARRATIVE: CASE EVENT DATE: 20190219
